FAERS Safety Report 7762265-8 (Version None)
Quarter: 2011Q3

REPORT INFORMATION
  Report Type: 
  Country: None (occurrence: None)
  Receive Date: 20110920
  Receipt Date: 20110513
  Transmission Date: 20111222
  Serious: Yes (Hospitalization)
  Sender: FDA-Public Use
  Company Number: FR-ROCHE-777395

PATIENT
  Sex: Female

DRUGS (11)
  1. ERYTROMYCINE [Suspect]
     Route: 042
     Dates: start: 20100114, end: 20110117
  2. NEXIUM [Suspect]
     Route: 042
     Dates: start: 20110109, end: 20110115
  3. PROPOFOL [Suspect]
     Route: 042
     Dates: start: 20100112, end: 20110118
  4. LASIX [Suspect]
     Route: 042
     Dates: start: 20100113, end: 20110119
  5. SODIUM HEPARIN [Suspect]
     Indication: THROMBOSIS PROPHYLAXIS
     Route: 058
     Dates: start: 20110109, end: 20110122
  6. ROCEPHIN [Suspect]
     Route: 042
     Dates: start: 20110109, end: 20110113
  7. SUFENTA PRESERVATIVE FREE [Suspect]
     Route: 042
     Dates: start: 20110110, end: 20110120
  8. MIDAZOLAM HCL [Suspect]
     Route: 042
     Dates: start: 20110110, end: 20110120
  9. PRIMPERAN TAB [Suspect]
     Route: 042
     Dates: start: 20100112, end: 20110117
  10. TAMIFLU [Suspect]
     Indication: INFLUENZA
     Route: 065
     Dates: start: 20110109
  11. ROVAMYCIN [Suspect]
     Route: 042
     Dates: start: 20110109, end: 20110113

REACTIONS (3)
  - CYTOLYTIC HEPATITIS [None]
  - PROTEINURIA [None]
  - CHOLESTASIS [None]
